FAERS Safety Report 9643541 (Version 3)
Quarter: 2014Q1

REPORT INFORMATION
  Report Type: Spontaneous
  Country: IT (occurrence: IT)
  Receive Date: 20131024
  Receipt Date: 20140207
  Transmission Date: 20141002
  Serious: Yes (Hospitalization, Other)
  Sender: FDA-Public Use
  Company Number: IT-JNJFOC-20131010415

PATIENT
  Age: 45 Year
  Sex: Male
  Weight: 100 kg

DRUGS (5)
  1. RISPERDAL [Suspect]
     Indication: PSYCHOTIC DISORDER
     Route: 048
  2. RISPERDAL [Suspect]
     Indication: PSYCHOTIC DISORDER
     Route: 048
     Dates: start: 20131015, end: 20131015
  3. TRITTICO [Suspect]
     Indication: DRUG ABUSE
     Route: 048
     Dates: start: 20131015, end: 20131015
  4. FLUOXETINE [Suspect]
     Indication: DRUG ABUSE
     Route: 065
     Dates: start: 20131015, end: 20131015
  5. TALOFEN [Suspect]
     Indication: PRODUCT USED FOR UNKNOWN INDICATION
     Route: 048

REACTIONS (2)
  - Drug abuse [Recovering/Resolving]
  - Sedation [Recovering/Resolving]
